FAERS Safety Report 8116762-6 (Version None)
Quarter: 2012Q1

REPORT INFORMATION
  Report Type: 
  Country: None (occurrence: None)
  Receive Date: 20120206
  Receipt Date: 20120126
  Transmission Date: 20120608
  Serious: Yes (Hospitalization)
  Sender: FDA-Public Use
  Company Number: US-BAYER-2011-074213

PATIENT
  Age: 26 Year
  Sex: Female
  Weight: 66 kg

DRUGS (6)
  1. PROTONIX [Concomitant]
  2. YASMIN [Suspect]
     Dosage: UNK
     Route: 048
     Dates: start: 20011201, end: 20060701
  3. PRILOSEC [Concomitant]
     Dosage: 20 MG, UNK
     Route: 048
  4. ZELNORM [Concomitant]
  5. PHENERGAN [Concomitant]
     Indication: NAUSEA
  6. MEFOXIN [Concomitant]

REACTIONS (4)
  - EMOTIONAL DISTRESS [None]
  - CHOLECYSTECTOMY [None]
  - CHOLECYSTITIS [None]
  - INJURY [None]
